FAERS Safety Report 18264630 (Version 2)
Quarter: 2020Q4

REPORT INFORMATION
  Report Type: Spontaneous
  Country: DE (occurrence: DE)
  Receive Date: 20200914
  Receipt Date: 20201123
  Transmission Date: 20210113
  Serious: Yes (Other)
  Sender: FDA-Public Use
  Company Number: DE-MYLANLABS-2020M1077159

PATIENT
  Sex: Female

DRUGS (1)
  1. FASTJEKT [Suspect]
     Active Substance: EPINEPHRINE
     Indication: ARTHROPOD STING
     Dosage: UNK

REACTIONS (2)
  - Product quality issue [Unknown]
  - Device issue [Unknown]
